FAERS Safety Report 5007976-2 (Version None)
Quarter: 2006Q2

REPORT INFORMATION
  Report Type: 
  Country: None (occurrence: None)
  Receive Date: 20060518
  Receipt Date: 20060502
  Transmission Date: 20061013
  Serious: Yes (Congenital Anomaly)
  Sender: FDA-Public Use
  Company Number: 8016540

PATIENT

DRUGS (1)
  1. KEPPRA [Suspect]
     Dosage: TRP
     Route: 064

REACTIONS (2)
  - BONE DEVELOPMENT ABNORMAL [None]
  - DRUG EXPOSURE DURING PREGNANCY [None]
